FAERS Safety Report 7355386-5 (Version None)
Quarter: 2011Q1

REPORT INFORMATION
  Report Type: 
  Country: None (occurrence: None)
  Receive Date: 20110316
  Receipt Date: 20110311
  Transmission Date: 20110831
  Serious: No
  Sender: FDA-Public Use
  Company Number: US-ROCHE-765123

PATIENT
  Sex: Male

DRUGS (3)
  1. TAMIFLU [Suspect]
     Route: 048
  2. TAMIFLU [Suspect]
     Route: 065
     Dates: start: 20110310
  3. TYLENOL-500 [Concomitant]

REACTIONS (2)
  - MEDICATION ERROR [None]
  - VOMITING [None]
